FAERS Safety Report 14972786 (Version 1)
Quarter: 2018Q2

REPORT INFORMATION
  Report Type: Spontaneous
  Country: US (occurrence: US)
  Receive Date: 20180514
  Receipt Date: 20180514
  Transmission Date: 20180711
  Serious: Yes (Life-Threatening)
  Sender: FDA-Public Use
  Company Number: None

PATIENT
  Age: 34 Year
  Sex: Female
  Weight: 72 kg

DRUGS (4)
  1. SPECTRUM VEGAN ULTRA OMEGA-3 EPA+DHA WITH D [Concomitant]
  2. BUPROPION HCL XL 300MG [Suspect]
     Active Substance: BUPROPION HYDROCHLORIDE
     Indication: DEPRESSION
     Dosage: ?          QUANTITY:1 DF DOSAGE FORM;?
     Route: 048
     Dates: start: 20180424, end: 20180511
  3. NP THYROID 30 [Concomitant]
     Active Substance: LEVOTHYROXINE\LIOTHYRONINE
  4. D-AMPHETAMINE SALT COM ER (XR) 10MG C [Concomitant]

REACTIONS (9)
  - Depression [None]
  - Fatigue [None]
  - Pain [None]
  - Suicidal ideation [None]
  - Decreased appetite [None]
  - Product substitution issue [None]
  - Insomnia [None]
  - Mood altered [None]
  - Lethargy [None]

NARRATIVE: CASE EVENT DATE: 20180508
